FAERS Safety Report 4433705-7 (Version None)
Quarter: 2004Q3

REPORT INFORMATION
  Report Type: 
  Country: None (occurrence: None)
  Receive Date: 20040825
  Receipt Date: 20040825
  Transmission Date: 20050211
  Serious: Yes (Other)
  Sender: FDA-Public Use
  Company Number: None

PATIENT
  Sex: Male
  Weight: 40.8237 kg

DRUGS (3)
  1. ATOMOXETINE 60MG (ELI LILLY) [Suspect]
     Dosage: 60MG PO DAILY
     Route: 048
     Dates: end: 20040101
  2. ARIPIPRAZOLE [Concomitant]
  3. CLONIDINE HCL [Concomitant]

REACTIONS (2)
  - AGGRESSION [None]
  - ANGER [None]
